FAERS Safety Report 17910103 (Version 1)
Quarter: 2020Q2

REPORT INFORMATION
  Report Type: Report from Study
  Country: GB (occurrence: GB)
  Receive Date: 20200617
  Receipt Date: 20200617
  Transmission Date: 20200714
  Serious: Yes (Other)
  Sender: FDA-Public Use
  Company Number: GB-SAMSUNG BIOEPIS-SB-2020-17431

PATIENT
  Age: 54 Year
  Sex: Female

DRUGS (1)
  1. IMRALDI [Suspect]
     Active Substance: ADALIMUMAB
     Indication: RHEUMATOID ARTHRITIS
     Route: 058
     Dates: start: 20190318

REACTIONS (5)
  - Malaise [Unknown]
  - Suspected COVID-19 [Unknown]
  - Ill-defined disorder [Unknown]
  - Cough [Unknown]
  - Chest discomfort [Unknown]
